FAERS Safety Report 6340220-2 (Version None)
Quarter: 2009Q3

REPORT INFORMATION
  Report Type: 
  Country: None (occurrence: None)
  Receive Date: 20090902
  Receipt Date: 20090821
  Transmission Date: 20100115
  Serious: Yes (Disabling)
  Sender: FDA-Public Use
  Company Number: US-1170679

PATIENT
  Age: 3 Year
  Sex: Female

DRUGS (1)
  1. TOBRADEX [Suspect]
     Dosage: OPHTHALMIC
     Route: 047
     Dates: start: 20070103

REACTIONS (2)
  - BLINDNESS [None]
  - EXPIRED DRUG ADMINISTERED [None]
